FAERS Safety Report 14291597 (Version 1)
Quarter: 2017Q4

REPORT INFORMATION
  Report Type: Report from Study
  Country: US (occurrence: US)
  Receive Date: 20171215
  Receipt Date: 20171215
  Transmission Date: 20180321
  Serious: Yes (Other)
  Sender: FDA-Public Use
  Company Number: US-AMGEN-USASL2017183215

PATIENT
  Age: 59 Year
  Sex: Male

DRUGS (1)
  1. REPATHA [Suspect]
     Active Substance: EVOLOCUMAB
     Indication: BLOOD CHOLESTEROL INCREASED
     Dosage: 140 MG, Q2WK
     Route: 065
     Dates: start: 2016

REACTIONS (16)
  - Skin discolouration [Not Recovered/Not Resolved]
  - Diabetes mellitus [Unknown]
  - Palpitations [Unknown]
  - Insomnia [Unknown]
  - Nausea [Unknown]
  - Constipation [Recovered/Resolved]
  - Pruritus [Unknown]
  - Dry skin [Unknown]
  - Diarrhoea [Unknown]
  - Blood triglycerides increased [Unknown]
  - Arthritis [Not Recovered/Not Resolved]
  - Limb discomfort [Unknown]
  - Abdominal pain [Unknown]
  - Scratch [Unknown]
  - Vision blurred [Unknown]
  - Alopecia [Unknown]

NARRATIVE: CASE EVENT DATE: 2017
